FAERS Safety Report 5498244-3 (Version None)
Quarter: 2007Q4

REPORT INFORMATION
  Report Type: 
  Country: None (occurrence: None)
  Receive Date: 20071025
  Receipt Date: 20070417
  Transmission Date: 20080405
  Serious: No
  Sender: FDA-Public Use
  Company Number: A0647663A

PATIENT
  Age: 63 Year
  Sex: Male

DRUGS (5)
  1. ADVAIR DISKUS 100/50 [Suspect]
     Indication: EMPHYSEMA
     Dosage: 2PUFF TWICE PER DAY
     Route: 055
     Dates: start: 20070301
  2. ALLEGRA [Concomitant]
  3. ERYTHROMYCIN [Concomitant]
  4. METOPROLOL TARTRATE [Concomitant]
  5. MORPHINE SULFATE [Concomitant]

REACTIONS (4)
  - ACCIDENTAL OVERDOSE [None]
  - APHONIA [None]
  - PAIN IN EXTREMITY [None]
  - RESPIRATORY TRACT CONGESTION [None]
